FAERS Safety Report 25251727 (Version 4)
Quarter: 2025Q3

REPORT INFORMATION
  Report Type: Spontaneous
  Country: CA (occurrence: CA)
  Receive Date: 20250429
  Receipt Date: 20250718
  Transmission Date: 20251021
  Serious: Yes (Other)
  Sender: PFIZER
  Company Number: CA-PFIZER INC-PV202400161419

PATIENT
  Age: 64 Year
  Sex: Male

DRUGS (2)
  1. INLYTA [Suspect]
     Active Substance: AXITINIB
     Indication: Metastatic renal cell carcinoma
     Dosage: 5 MG, 2X/DAY
     Route: 048
     Dates: start: 20241118, end: 20241125
  2. KEYTRUDA [Concomitant]
     Active Substance: PEMBROLIZUMAB

REACTIONS (8)
  - Addison^s disease [Unknown]
  - Illness [Unknown]
  - Oropharyngeal pain [Unknown]
  - Cough [Unknown]
  - Odynophagia [Unknown]
  - Lymphadenopathy [Unknown]
  - Fatigue [Unknown]
  - Pain [Unknown]
